FAERS Safety Report 6695385-X (Version None)
Quarter: 2010Q2

REPORT INFORMATION
  Report Type: 
  Country: None (occurrence: None)
  Receive Date: 20100423
  Receipt Date: 20100423
  Transmission Date: 20101027
  Serious: Yes (Hospitalization)
  Sender: FDA-Public Use
  Company Number: None

PATIENT
  Age: 67 Year
  Sex: Male
  Weight: 159.09 kg

DRUGS (13)
  1. COUMADIN [Suspect]
     Indication: ATRIAL FIBRILLATION
     Dosage: 3MG QAM PO  CHRONIC
     Route: 048
  2. ASPIRIN [Suspect]
     Indication: ATRIAL FIBRILLATION
     Dosage: 81MG QHS PO  CHRONIC
     Route: 048
  3. ALLOPURINOL [Concomitant]
  4. VYTORIN [Concomitant]
  5. METOPROLOL [Concomitant]
  6. LISINOPRIL [Concomitant]
  7. NIASPAN ER [Concomitant]
  8. ANDROGEL [Concomitant]
  9. CENTRUM SILVER [Concomitant]
  10. VIT C [Concomitant]
  11. FISH OIL [Concomitant]
  12. CALCIUM CITRATE [Concomitant]
  13. SAW PALMETTO [Concomitant]

REACTIONS (1)
  - EPISTAXIS [None]
